FAERS Safety Report 13359788 (Version 2)
Quarter: 2017Q1

REPORT INFORMATION
  Report Type: Spontaneous
  Country: GB (occurrence: GB)
  Receive Date: 20170322
  Receipt Date: 20170322
  Transmission Date: 20170429
  Serious: Yes (Hospitalization)
  Sender: FDA-Public Use
  Company Number: GB-JNJFOC-20170317278

PATIENT
  Age: 26 Year
  Sex: Male

DRUGS (1)
  1. TREVICTA [Suspect]
     Active Substance: PALIPERIDONE PALMITATE
     Indication: BIPOLAR DISORDER
     Route: 030
     Dates: start: 20170216

REACTIONS (5)
  - Off label use [Unknown]
  - Psychotic disorder [Unknown]
  - Insomnia [Unknown]
  - Product use issue [Unknown]
  - Depression [Unknown]

NARRATIVE: CASE EVENT DATE: 2017
